FAERS Safety Report 6928130-0 (Version None)
Quarter: 2010Q3

REPORT INFORMATION
  Report Type: 
  Country: None (occurrence: None)
  Receive Date: 20100812
  Receipt Date: 20100803
  Transmission Date: 20110219
  Serious: Yes (Hospitalization)
  Sender: FDA-Public Use
  Company Number: 0211781

PATIENT
  Age: 50 Year
  Sex: Female
  Weight: 59 kg

DRUGS (1)
  1. TACHOSIL [Suspect]
     Dosage: 1 SPONGE OF 9.5 X 4.8 CM TOPICAL
     Route: 061
     Dates: start: 20100511, end: 20100511

REACTIONS (2)
  - APPLICATION SITE HAEMATOMA [None]
  - THROMBOSIS [None]
